FAERS Safety Report 9036712 (Version 2)
Quarter: 2013Q1

REPORT INFORMATION
  Report Type: Spontaneous
  Country: FR (occurrence: None)
  Receive Date: 20130114
  Receipt Date: 20130328
  Transmission Date: 20140127
  Serious: Yes (Other)
  Sender: FDA-Public Use
  Company Number: TPA2013A00638

PATIENT
  Age: 75 Year
  Sex: Male

DRUGS (4)
  1. ADENURIC [Suspect]
     Indication: HYPERURICAEMIA
     Route: 048
     Dates: start: 201202, end: 201212
  2. AMOXICILLIN TRIHYDRATE [Suspect]
     Indication: TRACHEITIS
     Route: 048
     Dates: start: 2012
  3. CORTISONE (CORTISONE) [Concomitant]
  4. INEGY (SIMVASTATIN, EZETIMIBE) [Concomitant]

REACTIONS (6)
  - Conjunctivitis [None]
  - Anaphylactic shock [None]
  - Rash erythematous [None]
  - Vomiting [None]
  - Drug interaction [None]
  - Toxic skin eruption [None]
